FAERS Safety Report 11435160 (Version 3)
Quarter: 2016Q1

REPORT INFORMATION
  Report Type: Spontaneous
  Country: JP (occurrence: JP)
  Receive Date: 20150831
  Receipt Date: 20160121
  Transmission Date: 20160525
  Serious: Yes (Other)
  Sender: FDA-Public Use
  Company Number: JP-MALLINCKRODT-T201504136

PATIENT
  Age: 67 Year
  Sex: Female
  Weight: 45 kg

DRUGS (22)
  1. METHADONE [Suspect]
     Active Substance: METHADONE HYDROCHLORIDE
     Dosage: 10 MG (30 MG DAILY DOSE)
     Route: 048
     Dates: start: 20150419, end: 20150423
  2. OXINORM [Concomitant]
     Active Substance: OXYCODONE HYDROCHLORIDE
     Dosage: 20 MG, PRN
     Route: 048
     Dates: start: 20150211
  3. MYSLEE [Concomitant]
     Active Substance: ZOLPIDEM TARTRATE
     Dosage: 5 MG
     Route: 048
     Dates: start: 20150120, end: 20150311
  4. ZOMETA [Concomitant]
     Active Substance: ZOLEDRONIC ACID
     Dosage: 4 MG
     Route: 051
     Dates: start: 20141218, end: 20150327
  5. XYLOCAINE [Concomitant]
     Active Substance: LIDOCAINE HYDROCHLORIDE
     Indication: ANALGESIC THERAPY
     Dosage: 500 MG
     Route: 051
     Dates: start: 20150414, end: 20150507
  6. METHADONE [Suspect]
     Active Substance: METHADONE HYDROCHLORIDE
     Dosage: 20 MG (60 MG DAILY DOSE)
     Route: 048
     Dates: start: 20150305, end: 20150409
  7. NEXIUM [Concomitant]
     Active Substance: ESOMEPRAZOLE MAGNESIUM
     Dosage: 20 MG
     Route: 048
     Dates: start: 20141119, end: 20150422
  8. LYRICA [Concomitant]
     Active Substance: PREGABALIN
     Indication: ANALGESIC THERAPY
     Dosage: 50 MG
     Route: 048
     Dates: start: 20150420, end: 20150422
  9. METHADONE [Suspect]
     Active Substance: METHADONE HYDROCHLORIDE
     Dosage: 30 MG (60 MG DAILY DOSE)
     Route: 048
     Dates: start: 20150417, end: 20150418
  10. GEMCITABINE [Concomitant]
     Active Substance: GEMCITABINE\GEMCITABINE HYDROCHLORIDE
     Dosage: 1900 MG
     Route: 051
     Dates: start: 20141218, end: 20150410
  11. OXYFAST [Concomitant]
     Active Substance: OXYCODONE
     Dosage: 240 MG
     Route: 051
     Dates: start: 20150421, end: 20150423
  12. METHADONE [Suspect]
     Active Substance: METHADONE HYDROCHLORIDE
     Indication: CANCER PAIN
     Dosage: 10 MG (30 MG DAILY DOSE)
     Route: 048
     Dates: start: 20150212, end: 20150218
  13. ALFAROL [Concomitant]
     Active Substance: ALFACALCIDOL
     Dosage: 1 ?G
     Route: 048
     Dates: start: 20141205, end: 20150304
  14. METHADONE [Suspect]
     Active Substance: METHADONE HYDROCHLORIDE
     Dosage: 15 MG (45 MG DAILY DOSE)
     Route: 048
     Dates: start: 20150219, end: 20150304
  15. LULLAN [Concomitant]
     Active Substance: PEROSPIRONE HYDROCHLORIDE
     Dosage: 8 MG
     Route: 048
     Dates: start: 20141225, end: 20150304
  16. METHADONE [Suspect]
     Active Substance: METHADONE HYDROCHLORIDE
     Dosage: 30 MG (90 MG DAILY DOSE)
     Route: 048
     Dates: start: 20150410, end: 20150416
  17. MAGNESIUM OXIDE. [Concomitant]
     Active Substance: MAGNESIUM OXIDE
     Dosage: 3 G
     Route: 048
     Dates: start: 20141225, end: 20150426
  18. LAXOBERON [Concomitant]
     Active Substance: SODIUM PICOSULFATE
     Dosage: 15 MG
     Route: 048
     Dates: start: 20150128, end: 20150428
  19. DECADRON [Concomitant]
     Active Substance: DEXAMETHASONE
     Dosage: 8 MG
     Dates: start: 20141218, end: 20150410
  20. OXYFAST [Concomitant]
     Active Substance: OXYCODONE
     Indication: ANALGESIC THERAPY
     Dosage: 120 MG
     Route: 051
     Dates: start: 20150418, end: 20150420
  21. NAIXAN [Concomitant]
     Active Substance: NAPROXEN SODIUM
     Indication: ANALGESIC THERAPY
     Dosage: 600 MG
     Route: 048
     Dates: start: 20150128, end: 20150426
  22. ASPARA [Concomitant]
     Active Substance: CALCIUM ASPARTATE
     Dosage: 1200 MG
     Route: 048
     Dates: start: 20141205, end: 20150304

REACTIONS (4)
  - Oxygen saturation decreased [Recovered/Resolved]
  - Delirium [Not Recovered/Not Resolved]
  - Somnolence [Recovering/Resolving]
  - Wheezing [Recovered/Resolved]

NARRATIVE: CASE EVENT DATE: 20150422
